FAERS Safety Report 4421541-7 (Version None)
Quarter: 2004Q3

REPORT INFORMATION
  Report Type: 
  Country: None (occurrence: None)
  Receive Date: 20040804
  Receipt Date: 20040723
  Transmission Date: 20050211
  Serious: Yes (Other)
  Sender: FDA-Public Use
  Company Number: US-JNJFOC-20040706472

PATIENT
  Age: 40 Year
  Sex: Female

DRUGS (6)
  1. INFLIXIMAB (INFLIXIMAB, RECOMBINANT) LYOPHILIZED POWDER [Suspect]
     Indication: RHEUMATOID ARTHRITIS
     Dosage: INTRAVENOUS
     Route: 042
     Dates: start: 20010518, end: 20030801
  2. DIAZEPAM [Concomitant]
  3. MULTIVITAMIN (MULTIVITAMIN) [Concomitant]
  4. NAPROXEN [Concomitant]
  5. OXYCONTIN [Concomitant]
  6. AMBIEN [Concomitant]

REACTIONS (1)
  - TUBERCULOSIS [None]
